FAERS Safety Report 9921076 (Version 1)
Quarter: 2014Q1

REPORT INFORMATION
  Report Type: Spontaneous
  Country: CH (occurrence: CH)
  Receive Date: 20140225
  Receipt Date: 20140225
  Transmission Date: 20141002
  Serious: Yes (Hospitalization, Other)
  Sender: FDA-Public Use
  Company Number: CH-ASTRAZENECA-2014SE11459

PATIENT
  Age: 66 Year
  Sex: Male
  Weight: 83.5 kg

DRUGS (3)
  1. NEXIUM [Suspect]
     Indication: GASTRITIS PROPHYLAXIS
     Route: 048
  2. YERVOY [Suspect]
     Indication: MALIGNANT MELANOMA STAGE IV
     Route: 041
     Dates: start: 20131203, end: 20131223
  3. SPIRICORT [Suspect]
     Indication: MALIGNANT MELANOMA STAGE IV
     Route: 048

REACTIONS (3)
  - Campylobacter gastroenteritis [Recovered/Resolved]
  - Disease progression [Unknown]
  - Hepatic enzyme increased [Recovering/Resolving]
